FAERS Safety Report 5340970-0 (Version None)
Quarter: 2007Q2

REPORT INFORMATION
  Report Type: 
  Country: None (occurrence: None)
  Receive Date: 20070405
  Receipt Date: 20070123
  Transmission Date: 20071010
  Serious: No
  Sender: FDA-Public Use
  Company Number: US200701004498

PATIENT
  Age: 47 Year
  Sex: Female

DRUGS (5)
  1. CYMBALTA [Suspect]
     Indication: DEPRESSION
     Dosage: 30 MG, ORAL
     Route: 048
     Dates: start: 20040101, end: 20040101
  2. CYMBALTA [Suspect]
     Indication: DEPRESSION
     Dosage: 30 MG, ORAL
     Route: 048
     Dates: start: 20070101, end: 20070101
  3. PROZAC [Suspect]
  4. ABILIFY [Concomitant]
  5. IBUPROFEN [Concomitant]

REACTIONS (11)
  - ANOREXIA [None]
  - DRY MOUTH [None]
  - FATIGUE [None]
  - GAIT DISTURBANCE [None]
  - INFLUENZA [None]
  - MALAISE [None]
  - MASS [None]
  - NASOPHARYNGITIS [None]
  - NIGHT SWEATS [None]
  - VOMITING [None]
  - WEIGHT DECREASED [None]
